FAERS Safety Report 22064819 (Version 1)
Quarter: 2023Q1

REPORT INFORMATION
  Report Type: Report from Study
  Country: CA (occurrence: CA)
  Receive Date: 20230306
  Receipt Date: 20230306
  Transmission Date: 20230418
  Serious: Yes (Other)
  Sender: FDA-Public Use
  Company Number: CA-002147023-NVSC2023CA047473

PATIENT
  Sex: Female

DRUGS (1)
  1. ROSUVASTATIN CALCIUM [Suspect]
     Active Substance: ROSUVASTATIN CALCIUM
     Indication: Arteriosclerosis
     Dosage: UNK
     Route: 065

REACTIONS (4)
  - Coronary artery stenosis [Not Recovered/Not Resolved]
  - Coronary artery disease [Unknown]
  - Chest pain [Unknown]
  - Dyspnoea [Unknown]
